FAERS Safety Report 12953215 (Version 1)
Quarter: 2016Q4

REPORT INFORMATION
  Report Type: Spontaneous
  Country: US (occurrence: US)
  Receive Date: 20161117
  Receipt Date: 20161117
  Transmission Date: 20170207
  Serious: Yes (Death)
  Sender: FDA-Public Use
  Company Number: US-PFIZER INC-2016235458

PATIENT
  Age: 75 Year
  Sex: Male
  Weight: 77.98 kg

DRUGS (1)
  1. VIAGRA [Suspect]
     Active Substance: SILDENAFIL CITRATE
     Indication: PULMONARY HYPERTENSION
     Dosage: 25 MG, UNK

REACTIONS (2)
  - Myocardial infarction [Fatal]
  - Product use issue [Unknown]

NARRATIVE: CASE EVENT DATE: 20160718
